FAERS Safety Report 21265865 (Version 1)
Quarter: 2022Q3

REPORT INFORMATION
  Report Type: Spontaneous
  Country: US (occurrence: None)
  Receive Date: 20220826
  Receipt Date: 20220826
  Transmission Date: 20221027
  Serious: Yes (Hospitalization)
  Sender: FDA-Public Use
  Company Number: None

PATIENT
  Age: 68 Year
  Sex: Male
  Weight: 81 kg

DRUGS (1)
  1. TOPIRAMATE [Suspect]
     Active Substance: TOPIRAMATE
     Indication: Product used for unknown indication
     Dosage: PO
     Route: 048

REACTIONS (6)
  - Hallucination, auditory [None]
  - Suicidal ideation [None]
  - Treatment noncompliance [None]
  - Delirium [None]
  - Ex-drug abuser [None]
  - Disorientation [None]

NARRATIVE: CASE EVENT DATE: 20220409
